FAERS Safety Report 19002988 (Version 1)
Quarter: 2021Q1

REPORT INFORMATION
  Report Type: Spontaneous
  Country: US (occurrence: US)
  Receive Date: 20210312
  Receipt Date: 20210312
  Transmission Date: 20210420
  Serious: Yes (Other)
  Sender: FDA-Public Use
  Company Number: US-BAYER-2021-103012

PATIENT
  Age: 45 Year
  Sex: Female

DRUGS (3)
  1. ACETYLSALICYLIC ACID [Suspect]
     Active Substance: ASPIRIN
  2. APIXABAN [Suspect]
     Active Substance: APIXABAN
  3. PLAVIX [Suspect]
     Active Substance: CLOPIDOGREL BISULFATE

REACTIONS (3)
  - Haemoglobin decreased [None]
  - Vaginal haemorrhage [None]
  - Labelled drug-disease interaction medication error [None]
